FAERS Safety Report 22139644 (Version 3)
Quarter: 2023Q2

REPORT INFORMATION
  Report Type: Report from Study
  Country: CA (occurrence: CA)
  Receive Date: 20230327
  Receipt Date: 20230608
  Transmission Date: 20230722
  Serious: Yes (Hospitalization)
  Sender: FDA-Public Use
  Company Number: CA-TEVA-2023-CA-2869771

PATIENT
  Sex: Male

DRUGS (2)
  1. OCTREOTIDE [Suspect]
     Active Substance: OCTREOTIDE
     Indication: Carcinoid tumour
     Dosage: DOSE: 30MILLIGRAM EVERY 2 WEEKS
     Route: 030
     Dates: start: 20220715
  2. OCTREOTIDE [Suspect]
     Active Substance: OCTREOTIDE
     Dosage: DOSE: 30MILLIGRAM EVERY 2 WEEKS
     Route: 030

REACTIONS (1)
  - Contrast media reaction [Unknown]
